FAERS Safety Report 19115654 (Version 1)
Quarter: 2021Q2

REPORT INFORMATION
  Report Type: Spontaneous
  Country: US (occurrence: US)
  Receive Date: 20210409
  Receipt Date: 20210409
  Transmission Date: 20210717
  Serious: No
  Sender: FDA-Public Use
  Company Number: US-TEVA-2021-US-1894780

PATIENT
  Sex: Male

DRUGS (1)
  1. METOPROLOL SUCCINATE. [Suspect]
     Active Substance: METOPROLOL SUCCINATE
     Indication: CARDIAC FAILURE
     Dates: start: 202012

REACTIONS (6)
  - Adverse drug reaction [Unknown]
  - Muscle twitching [Unknown]
  - Drug ineffective [Unknown]
  - Headache [Unknown]
  - Erythema [Unknown]
  - Eye swelling [Unknown]

NARRATIVE: CASE EVENT DATE: 202012
